FAERS Safety Report 15720479 (Version 2)
Quarter: 2018Q4

REPORT INFORMATION
  Report Type: Report from Study
  Country: CA (occurrence: CA)
  Receive Date: 20181213
  Receipt Date: 20181217
  Transmission Date: 20190205
  Serious: Yes (Hospitalization)
  Sender: FDA-Public Use
  Company Number: CA-HLSUS-2018-CA-001623

PATIENT
  Age: 61 Year
  Sex: Male

DRUGS (1)
  1. CLOZARIL [Suspect]
     Active Substance: CLOZAPINE
     Route: 048
     Dates: start: 20120302

REACTIONS (6)
  - Confusional state [Unknown]
  - Hypotension [Unknown]
  - Hepatic cancer [Unknown]
  - Pneumonia [Unknown]
  - Fall [Unknown]
  - Tumour thrombosis [Unknown]

NARRATIVE: CASE EVENT DATE: 20181022
